FAERS Safety Report 6107050-8 (Version None)
Quarter: 2009Q1

REPORT INFORMATION
  Report Type: 
  Country: None (occurrence: None)
  Receive Date: 20090305
  Receipt Date: 20090305
  Transmission Date: 20090719
  Serious: Yes (Disabling, Other)
  Sender: FDA-Public Use
  Company Number: None

PATIENT
  Age: 69 Year
  Sex: Female
  Weight: 62.5964 kg

DRUGS (1)
  1. ZOMETA [Suspect]
     Indication: OSTEOPENIA
     Dosage: 1 INFUSION PER YEAR INJ ONCE A YEAR

REACTIONS (1)
  - ARTHRALGIA [None]
